FAERS Safety Report 6956124-8 (Version None)
Quarter: 2010Q3

REPORT INFORMATION
  Report Type: 
  Country: None (occurrence: None)
  Receive Date: 20100830
  Receipt Date: 20091005
  Transmission Date: 20110219
  Serious: No
  Sender: FDA-Public Use
  Company Number: US-BAUSCH-2009BL005004

PATIENT
  Age: 56 Year
  Sex: Female

DRUGS (4)
  1. CROMOLYN SODIUM [Suspect]
     Indication: SEASONAL ALLERGY
     Route: 045
     Dates: start: 20090905
  2. SYNTHROID [Concomitant]
  3. ZETIA [Concomitant]
  4. NIASPAN [Concomitant]

REACTIONS (1)
  - HYPERTENSION [None]
